FAERS Safety Report 5151094-X (Version None)
Quarter: 2006Q4

REPORT INFORMATION
  Report Type: 
  Country: None (occurrence: None)
  Receive Date: 20061114
  Receipt Date: 20061114
  Transmission Date: 20070319
  Serious: Yes (Other)
  Sender: FDA-Public Use
  Company Number: None

PATIENT
  Sex: Male
  Weight: 7.2576 kg

DRUGS (2)
  1. ZYRTEC [Suspect]
     Dates: start: 20061026, end: 20061028
  2. ZANTAC [Suspect]

REACTIONS (4)
  - DRUG DISPENSING ERROR [None]
  - INCORRECT DOSE ADMINISTERED [None]
  - MEDICATION ERROR [None]
  - WRONG DRUG ADMINISTERED [None]
